FAERS Safety Report 9513926 (Version 1)
Quarter: 2013Q3

REPORT INFORMATION
  Report Type: Spontaneous
  Country: US (occurrence: US)
  Receive Date: 20130910
  Receipt Date: 20130910
  Transmission Date: 20140515
  Serious: Yes (Hospitalization)
  Sender: FDA-Public Use
  Company Number: US-B.I. PHARMACEUTICALS,INC./RIDGEFIELD-2013-BI-27730BP

PATIENT
  Sex: Female

DRUGS (1)
  1. COMBIVENT [Suspect]
     Indication: ASTHMA
     Dosage: DOSE PER APPLICATION: 18 MCG / 103 MCG;
     Route: 055
     Dates: start: 2010, end: 20130526

REACTIONS (4)
  - Respiratory failure [Recovered/Resolved]
  - Spinal cord disorder [Recovered/Resolved]
  - Asthma [Recovered/Resolved]
  - Off label use [Not Recovered/Not Resolved]
